FAERS Safety Report 15898763 (Version 2)
Quarter: 2019Q1

REPORT INFORMATION
  Report Type: Spontaneous
  Country: US (occurrence: US)
  Receive Date: 20190201
  Receipt Date: 20190209
  Transmission Date: 20190417
  Serious: No
  Sender: FDA-Public Use
  Company Number: US-JNJFOC-20190108914

PATIENT
  Sex: Female

DRUGS (2)
  1. ONE-A-DAY [Concomitant]
     Active Substance: VITAMINS
     Indication: PRODUCT USED FOR UNKNOWN INDICATION
     Route: 065
  2. TYLENOL EXTRA STRENGTH [Suspect]
     Active Substance: ACETAMINOPHEN
     Indication: PREMEDICATION
     Dosage: 4 TO 6 HOURS
     Route: 048

REACTIONS (3)
  - Cough [Recovered/Resolved]
  - Product use in unapproved indication [Unknown]
  - Off label use [Unknown]
